FAERS Safety Report 8342849 (Version 2)
Quarter: 2013Q1

REPORT INFORMATION
  Report Type: Spontaneous
  Country: US (occurrence: US)
  Receive Date: 20120119
  Receipt Date: 20130308
  Transmission Date: 20140127
  Serious: Yes (Other)
  Sender: FDA-Public Use
  Company Number: US-PFIZER INC-2012013192

PATIENT
  Age: 47 Year
  Sex: Male

DRUGS (1)
  1. GEODON [Suspect]
     Dosage: 80 MG, DAILY AT BEDTIME

REACTIONS (2)
  - Depression [Unknown]
  - Irritability [Unknown]
